FAERS Safety Report 11789961 (Version 1)
Quarter: 2015Q4

REPORT INFORMATION
  Report Type: Spontaneous
  Country: US (occurrence: US)
  Receive Date: 20151201
  Receipt Date: 20151201
  Transmission Date: 20160305
  Serious: No
  Sender: FDA-Public Use
  Company Number: US-BRACCO-012966

PATIENT

DRUGS (1)
  1. GADOLINIUM [Suspect]
     Active Substance: GADOLINIUM
     Indication: NUCLEAR MAGNETIC RESONANCE IMAGING
     Dosage: DOSES RANGING FROM 10 TO 126 ML

REACTIONS (2)
  - Nuclear magnetic resonance imaging abnormal [Unknown]
  - Nuclear magnetic resonance imaging brain abnormal [Unknown]
